FAERS Safety Report 21899715 (Version 1)
Quarter: 2023Q1

REPORT INFORMATION
  Report Type: Spontaneous
  Country: US (occurrence: US)
  Receive Date: 20230123
  Receipt Date: 20230123
  Transmission Date: 20230417
  Serious: No
  Sender: FDA-Public Use
  Company Number: US-NOVOPROD-1000766

PATIENT

DRUGS (1)
  1. OZEMPIC [Suspect]
     Active Substance: SEMAGLUTIDE
     Indication: Type 2 diabetes mellitus
     Dosage: 0.25 MG ONCE WEEKLY
     Route: 058
     Dates: start: 20221023, end: 20221023

REACTIONS (3)
  - Blood urine present [Unknown]
  - Abdominal distension [Unknown]
  - Constipation [Unknown]
